FAERS Safety Report 19702389 (Version 4)
Quarter: 2023Q2

REPORT INFORMATION
  Report Type: Spontaneous
  Country: CA (occurrence: CA)
  Receive Date: 20210815
  Receipt Date: 20230403
  Transmission Date: 20230721
  Serious: Yes (Hospitalization, Other)
  Sender: FDA-Public Use
  Company Number: CA-SAMSUNG BIOEPIS-SB-2021-18913

PATIENT
  Age: 15 Year
  Sex: Female

DRUGS (7)
  1. ETANERCEPT [Suspect]
     Active Substance: ETANERCEPT
     Indication: Juvenile idiopathic arthritis
     Route: 058
  2. ETANERCEPT [Suspect]
     Active Substance: ETANERCEPT
     Dosage: UNKNOWN
     Route: 058
  3. ETANERCEPT [Suspect]
     Active Substance: ETANERCEPT
     Route: 058
  4. DESOXIMETASONE [Suspect]
     Active Substance: DESOXIMETASONE
     Indication: Product used for unknown indication
     Dosage: UNKNOWN
     Route: 065
  5. ARAVA [Concomitant]
     Active Substance: LEFLUNOMIDE
     Indication: Product used for unknown indication
     Dosage: UNKNOWN
     Route: 048
  6. PREDNISONE [Concomitant]
     Active Substance: PREDNISONE
     Indication: Product used for unknown indication
     Dosage: UNKNOWN
     Route: 065
  7. EPINEPHRINE HYDROCHLORIDE [Concomitant]
     Active Substance: EPINEPHRINE HYDROCHLORIDE
     Indication: Product used for unknown indication
     Dosage: UNKNOWN
     Route: 058

REACTIONS (24)
  - Blood pressure abnormal [Unknown]
  - Injection site pain [Unknown]
  - Neck mass [Unknown]
  - Osteitis [Unknown]
  - Anaphylactic reaction [Unknown]
  - Anaphylactic shock [Unknown]
  - Arthropod sting [Unknown]
  - Asthenia [Unknown]
  - Heart rate increased [Unknown]
  - Injection site swelling [Unknown]
  - Swelling face [Unknown]
  - General physical health deterioration [Unknown]
  - COVID-19 [Unknown]
  - Contusion [Unknown]
  - Dysstasia [Unknown]
  - Injection site mass [Unknown]
  - Headache [Unknown]
  - Injury [Unknown]
  - Nausea [Unknown]
  - Drug intolerance [Unknown]
  - Drug ineffective [Unknown]
  - Device issue [Unknown]
  - Device defective [Unknown]
  - Inappropriate schedule of product administration [Unknown]
